FAERS Safety Report 7237626-6 (Version None)
Quarter: 2011Q1

REPORT INFORMATION
  Report Type: 
  Country: None (occurrence: None)
  Receive Date: 20110113
  Receipt Date: 20110104
  Transmission Date: 20110831
  Serious: Yes (Other)
  Sender: FDA-Public Use
  Company Number: 1000018092

PATIENT
  Sex: Female

DRUGS (6)
  1. MEMANTINE [Suspect]
     Indication: ABNORMAL BEHAVIOUR
     Dosage: 20 MG (20 MG, 1 IN 1 D),ORAL
     Route: 048
  2. MEMANTINE [Suspect]
     Indication: AGITATION
     Dosage: 20 MG (20 MG, 1 IN 1 D),ORAL
     Route: 048
  3. MEMANTINE [Suspect]
     Indication: ABNORMAL BEHAVIOUR
     Dosage: 10 OR 15 MG (1 IN 1 D),ORAL
     Route: 048
  4. MEMANTINE [Suspect]
     Indication: AGITATION
     Dosage: 10 OR 15 MG (1 IN 1 D),ORAL
     Route: 048
  5. MEMANTINE [Suspect]
     Indication: ABNORMAL BEHAVIOUR
     Dosage: ORAL
     Route: 048
  6. MEMANTINE [Suspect]
     Indication: AGITATION
     Dosage: ORAL
     Route: 048

REACTIONS (2)
  - OFF LABEL USE [None]
  - PARKINSONISM [None]
